FAERS Safety Report 23093660 (Version 3)
Quarter: 2024Q2

REPORT INFORMATION
  Report Type: Report from Study
  Country: US (occurrence: US)
  Receive Date: 20231023
  Receipt Date: 20240509
  Transmission Date: 20240716
  Serious: Yes (Hospitalization, Other)
  Sender: FDA-Public Use
  Company Number: US-ABBVIE-5458223

PATIENT
  Sex: Female

DRUGS (6)
  1. SKYRIZI [Suspect]
     Active Substance: RISANKIZUMAB-RZAA
     Indication: Crohn^s disease
     Dosage: WEEK 12, STRENGTH:360MG/2.4ML
     Route: 058
     Dates: start: 20230824, end: 20230824
  2. SKYRIZI [Suspect]
     Active Substance: RISANKIZUMAB-RZAA
     Dosage: STRENGTH:360MG/2.4M, FORM STRENGTH: 2.4 MILLIGRAM
     Route: 058
     Dates: start: 2023
  3. SKYRIZI [Suspect]
     Active Substance: RISANKIZUMAB-RZAA
     Dosage: FORM STRENGTH: 2.4
     Route: 058
  4. SKYRIZI [Suspect]
     Active Substance: RISANKIZUMAB-RZAA
     Indication: Crohn^s disease
     Dosage: AT WEEK 0, FORM STRENGTH: 600 MILLIGRAM
     Route: 042
     Dates: start: 202306, end: 202306
  5. SKYRIZI [Suspect]
     Active Substance: RISANKIZUMAB-RZAA
     Indication: Crohn^s disease
     Dosage: AT WEEK 4, FORM STRENGTH: 600 MILLIGRAM
     Route: 042
     Dates: start: 202307, end: 202307
  6. SKYRIZI [Suspect]
     Active Substance: RISANKIZUMAB-RZAA
     Indication: Crohn^s disease
     Dosage: AT WEEK 8, FORM STRENGTH: 600 MILLIGRAM
     Route: 042
     Dates: start: 20230727, end: 20230727

REACTIONS (13)
  - Surgery [Unknown]
  - Feeling abnormal [Unknown]
  - Gastrointestinal sounds abnormal [Not Recovered/Not Resolved]
  - Multiple allergies [Unknown]
  - Nasopharyngitis [Not Recovered/Not Resolved]
  - Crohn^s disease [Not Recovered/Not Resolved]
  - Flatulence [Unknown]
  - Fatigue [Unknown]
  - Insomnia [Unknown]
  - Rhinorrhoea [Not Recovered/Not Resolved]
  - Abdominal distension [Not Recovered/Not Resolved]
  - Hyperhidrosis [Not Recovered/Not Resolved]
  - Nausea [Not Recovered/Not Resolved]

NARRATIVE: CASE EVENT DATE: 20230101
